FAERS Safety Report 8811764 (Version 2)
Quarter: 2012Q4

REPORT INFORMATION
  Report Type: 
  Country: US (occurrence: None)
  Receive Date: 20120921
  Receipt Date: 20121128
  Transmission Date: 20130627
  Serious: Yes (Death)
  Sender: FDA-Public Use
  Company Number: 2012CT000016

PATIENT
  Age: 33 Year
  Sex: Female

DRUGS (2)
  1. KORLYM [Suspect]
     Indication: CUSHING^S SYNDROME
     Route: 048
     Dates: start: 20120901, end: 20120903
  2. CHEMOTHERAPEUTICS [Concomitant]

REACTIONS (3)
  - Fatigue [None]
  - Adrenal gland cancer [None]
  - Malignant neoplasm progression [None]
